FAERS Safety Report 12694870 (Version 5)
Quarter: 2019Q1

REPORT INFORMATION
  Report Type: Spontaneous
  Country: US (occurrence: US)
  Receive Date: 20160829
  Receipt Date: 20190220
  Transmission Date: 20190417
  Serious: Yes (Death, Hospitalization, Other)
  Sender: FDA-Public Use
  Company Number: US-DSJP-DSU-2016-128055

PATIENT

DRUGS (8)
  1. TRIBENZOR [Suspect]
     Active Substance: AMLODIPINE BESYLATE\HYDROCHLOROTHIAZIDE\OLMESARTAN MEDOXOMIL
     Indication: PRODUCT USED FOR UNKNOWN INDICATION
     Dosage: 40/5/25 MG, QD
     Route: 048
     Dates: start: 20130910, end: 2015
  2. BENICAR [Suspect]
     Active Substance: OLMESARTAN MEDOXOMIL
     Indication: HYPERTENSION
     Dosage: 40 MG, QD
     Route: 048
     Dates: start: 2013, end: 201502
  3. BENICAR HCT [Suspect]
     Active Substance: HYDROCHLOROTHIAZIDE\OLMESARTAN MEDOXOMIL
     Indication: HYPERTENSION
     Dosage: UNK
     Dates: start: 2013, end: 2015
  4. SPIRIVA [Concomitant]
     Active Substance: TIOTROPIUM BROMIDE MONOHYDRATE
     Indication: PRODUCT USED FOR UNKNOWN INDICATION
     Dosage: 18 ?G, QD
     Route: 045
  5. BENICAR [Suspect]
     Active Substance: OLMESARTAN MEDOXOMIL
     Dates: end: 20150301
  6. HYDRALAZINE [Suspect]
     Active Substance: HYDRALAZINE HYDROCHLORIDE
     Indication: ACUTE KIDNEY INJURY
     Dosage: 100 MG, TID
     Route: 048
  7. METFORMIN [Concomitant]
     Active Substance: METFORMIN HYDROCHLORIDE
     Indication: PRODUCT USED FOR UNKNOWN INDICATION
     Dosage: 500 MG, BID
     Route: 048
  8. ASPIRIN                            /00002701/ [Concomitant]
     Active Substance: ASPIRIN
     Indication: PRODUCT USED FOR UNKNOWN INDICATION
     Dosage: 325 MG, QD
     Route: 048

REACTIONS (12)
  - Irritable bowel syndrome [Recovering/Resolving]
  - Fungal infection [Unknown]
  - Gastric ulcer [Unknown]
  - Herpes oesophagitis [Unknown]
  - Anaemia [Unknown]
  - Immune system disorder [Unknown]
  - Oesophagitis [Unknown]
  - Acute kidney injury [Fatal]
  - Glomerulonephritis [Fatal]
  - Vasculitis [Fatal]
  - Weight decreased [Unknown]
  - Enterocolitis viral [Unknown]

NARRATIVE: CASE EVENT DATE: 2014
